FAERS Safety Report 10671042 (Version 2)
Quarter: 2015Q2

REPORT INFORMATION
  Report Type: Spontaneous
  Country: AT (occurrence: AT)
  Receive Date: 20141223
  Receipt Date: 20150421
  Transmission Date: 20150821
  Serious: Yes (Death, Hospitalization, Other)
  Sender: FDA-Public Use
  Company Number: AT-SA-2014SA174677

PATIENT
  Sex: Male

DRUGS (8)
  1. IRINOTECAN [Concomitant]
     Active Substance: IRINOTECAN
     Dates: start: 20131015, end: 20131015
  2. FOLINIC ACID [Concomitant]
     Active Substance: LEUCOVORIN
     Dates: start: 20130919, end: 20130919
  3. IRINOTECAN [Concomitant]
     Active Substance: IRINOTECAN
     Dates: start: 20130919, end: 20130919
  4. FLUOROURACIL. [Concomitant]
     Active Substance: FLUOROURACIL
     Dates: start: 20131015, end: 20131015
  5. ZALTRAP [Suspect]
     Active Substance: ZIV-AFLIBERCEPT
     Indication: RECTAL ADENOCARCINOMA
     Route: 042
     Dates: start: 20130919, end: 20130919
  6. FLUOROURACIL. [Concomitant]
     Active Substance: FLUOROURACIL
     Dates: start: 20130919, end: 20130919
  7. FOLINIC ACID [Concomitant]
     Active Substance: LEUCOVORIN
     Dates: start: 20131015, end: 20131015
  8. ZALTRAP [Suspect]
     Active Substance: ZIV-AFLIBERCEPT
     Indication: RECTAL ADENOCARCINOMA
     Route: 042
     Dates: start: 20131015, end: 20131015

REACTIONS (13)
  - Muscular weakness [Unknown]
  - Leukopenia [Unknown]
  - Oedema peripheral [Unknown]
  - Anaemia [Unknown]
  - Liver function test abnormal [Unknown]
  - Hiccups [Unknown]
  - Asthenia [Unknown]
  - Inflammatory marker increased [Unknown]
  - Ascites [Unknown]
  - Hypoalbuminaemia [Unknown]
  - Dyspnoea [Unknown]
  - Abdominal pain upper [Unknown]
  - Disease progression [Fatal]

NARRATIVE: CASE EVENT DATE: 201309
